FAERS Safety Report 7357389-3 (Version None)
Quarter: 2011Q1

REPORT INFORMATION
  Report Type: 
  Country: None (occurrence: None)
  Receive Date: 20110317
  Receipt Date: 20110310
  Transmission Date: 20110831
  Serious: Yes (Hospitalization)
  Sender: FDA-Public Use
  Company Number: CA-ELI_LILLY_AND_COMPANY-CA201103004111

PATIENT
  Age: 76 Year
  Sex: Female

DRUGS (4)
  1. DILTIAZEM [Concomitant]
     Dosage: 360 MG, UNKNOWN
     Route: 065
  2. ATACAND [Concomitant]
     Dosage: 15 MG, UNKNOWN
     Route: 065
  3. METOPROLOL [Concomitant]
     Dosage: UNK, UNKNOWN
     Route: 065
  4. FORTEO [Suspect]
     Indication: OSTEOPOROSIS
     Dosage: 20 MG, DAILY (1/D)
     Route: 058
     Dates: start: 20091228, end: 20110224

REACTIONS (2)
  - LOSS OF CONSCIOUSNESS [None]
  - AMNESIA [None]
